FAERS Safety Report 6272193-5 (Version None)
Quarter: 2009Q3

REPORT INFORMATION
  Report Type: 
  Country: None (occurrence: None)
  Receive Date: 20090713
  Receipt Date: 20090326
  Transmission Date: 20100115
  Serious: No
  Sender: FDA-Public Use
  Company Number: 2009BM000076

PATIENT
  Age: 49 Year
  Sex: Male
  Weight: 73.8 kg

DRUGS (6)
  1. KUVAN [Suspect]
     Indication: PHENYLKETONURIA
     Dosage: 9.5 MG/KG; QD; PO; 20.2 MG/KG;QD;PO
     Route: 048
     Dates: start: 20090224, end: 20090311
  2. KUVAN [Suspect]
     Indication: PHENYLKETONURIA
     Dosage: 9.5 MG/KG; QD; PO; 20.2 MG/KG;QD;PO
     Route: 048
     Dates: start: 20090312, end: 20090326
  3. DEPAKOTE (CON.) [Concomitant]
  4. CLONAZEPAM (CON.) [Concomitant]
  5. RISPERDAL (CON.) [Concomitant]
  6. LACTULOSE (CON.) [Concomitant]

REACTIONS (4)
  - AGGRESSION [None]
  - HEAD BANGING [None]
  - SCREAMING [None]
  - SKIN DISORDER [None]
